FAERS Safety Report 4618621-X (Version None)
Quarter: 2005Q1

REPORT INFORMATION
  Report Type: 
  Country: None (occurrence: None)
  Receive Date: 20050323
  Receipt Date: 20050303
  Transmission Date: 20050727
  Serious: Yes (Death, Other)
  Sender: FDA-Public Use
  Company Number: USA050392241

PATIENT
  Age: 57 Year
  Sex: Female
  Weight: 178 kg

DRUGS (1)
  1. XIGRIS [Suspect]
     Indication: ABDOMINAL SEPSIS
     Dates: start: 20041001, end: 20041001

REACTIONS (1)
  - HAEMORRHAGE [None]
